FAERS Safety Report 22973393 (Version 2)
Quarter: 2024Q1

REPORT INFORMATION
  Report Type: Spontaneous
  Country: AU (occurrence: AU)
  Receive Date: 20230922
  Receipt Date: 20240122
  Transmission Date: 20240410
  Serious: Yes (Other)
  Sender: FDA-Public Use
  Company Number: AU-GSKCCFAPAC-Case-01814332_AE-75384

PATIENT

DRUGS (1)
  1. ZEJULA [Suspect]
     Active Substance: NIRAPARIB
     Indication: Ovarian cancer
     Dosage: UNK

REACTIONS (1)
  - Malignant neoplasm progression [Unknown]
